FAERS Safety Report 10309625 (Version 3)
Quarter: 2014Q4

REPORT INFORMATION
  Report Type: Report from Study
  Country: US (occurrence: US)
  Receive Date: 20140717
  Receipt Date: 20141230
  Transmission Date: 20150528
  Serious: Yes (Other)
  Sender: FDA-Public Use
  Company Number: US-ALEXION-A201401057

PATIENT

DRUGS (7)
  1. SOLIRIS [Suspect]
     Active Substance: ECULIZUMAB
     Indication: OFF LABEL USE
  2. SOLIRIS [Suspect]
     Active Substance: ECULIZUMAB
     Indication: HAEMOLYTIC URAEMIC SYNDROME
  3. AMOCILLIN                          /00249602/ [Concomitant]
     Indication: ANTIBIOTIC THERAPY
     Dosage: 20 MG/KG, QD
     Route: 065
     Dates: start: 20131107, end: 20131121
  4. CLARITIN [Concomitant]
     Active Substance: LORATADINE
     Indication: PRODUCT USED FOR UNKNOWN INDICATION
     Dosage: 5 MG, QD
     Route: 048
     Dates: start: 20140101
  5. PEN-V [Concomitant]
     Indication: PRODUCT USED FOR UNKNOWN INDICATION
     Dosage: 500 MG, TAKES 250 MG
     Dates: start: 20140101
  6. SOLIRIS [Suspect]
     Active Substance: ECULIZUMAB
     Indication: AUTOANTIBODY POSITIVE
     Dosage: 600 MG, Q2W
     Route: 042
     Dates: start: 20131101, end: 20140307
  7. SOLIRIS [Suspect]
     Active Substance: ECULIZUMAB
     Indication: COMPLEMENT FACTOR ABNORMAL

REACTIONS (13)
  - Tooth malformation [Not Recovered/Not Resolved]
  - Anal fissure [Unknown]
  - Off label use [Not Recovered/Not Resolved]
  - Rhinitis allergic [Unknown]
  - Haematochezia [Recovered/Resolved]
  - Diarrhoea [Not Recovered/Not Resolved]
  - Petechiae [Unknown]
  - Rash [Recovering/Resolving]
  - Cough [Unknown]
  - Dermatitis contact [Recovering/Resolving]
  - Antibody test abnormal [Unknown]
  - Gastrooesophageal reflux disease [Not Recovered/Not Resolved]
  - Constipation [Recovering/Resolving]

NARRATIVE: CASE EVENT DATE: 20140306
